FAERS Safety Report 10957202 (Version 2)
Quarter: 2015Q2

REPORT INFORMATION
  Report Type: Spontaneous
  Country: US (occurrence: US)
  Receive Date: 20150326
  Receipt Date: 20150522
  Transmission Date: 20150821
  Serious: Yes (Other)
  Sender: FDA-Public Use
  Company Number: US-TEVA-550376USA

PATIENT
  Age: 29 Year
  Sex: Female
  Weight: 83.99 kg

DRUGS (3)
  1. PARAGARD T 380A [Suspect]
     Active Substance: COPPER
     Indication: CONTRACEPTION
     Route: 015
     Dates: start: 20150112
  2. MULTIVITAMINS [Concomitant]
     Active Substance: VITAMINS
     Indication: SUPPLEMENTATION THERAPY
  3. PARAGARD T 380A [Suspect]
     Active Substance: COPPER
     Route: 015
     Dates: start: 20150330

REACTIONS (6)
  - Pain [Recovered/Resolved with Sequelae]
  - Abdominal distension [Unknown]
  - Dysmenorrhoea [Unknown]
  - Device dislocation [Not Recovered/Not Resolved]
  - Metrorrhagia [Unknown]
  - Dysfunctional uterine bleeding [Recovered/Resolved with Sequelae]

NARRATIVE: CASE EVENT DATE: 201501
